FAERS Safety Report 15934660 (Version 1)
Quarter: 2019Q1

REPORT INFORMATION
  Report Type: Spontaneous
  Country: GB (occurrence: GB)
  Receive Date: 20190207
  Receipt Date: 20190207
  Transmission Date: 20190417
  Serious: Yes (Other)
  Sender: FDA-Public Use
  Company Number: GB-TEVA-2019-GB-1007141

PATIENT
  Age: 41 Year
  Sex: Female
  Weight: 75 kg

DRUGS (2)
  1. CIPROFLOXACIN HYDROCHLORIDE. [Suspect]
     Active Substance: CIPROFLOXACIN HYDROCHLORIDE
     Indication: KIDNEY INFECTION
     Route: 048
     Dates: start: 20190101, end: 20190112
  2. PARACETAMOL COATED 90% [Concomitant]

REACTIONS (4)
  - Abdominal distension [Recovering/Resolving]
  - Neuralgia [Not Recovered/Not Resolved]
  - Paraesthesia [Recovered/Resolved]
  - Hypoaesthesia [Recovered/Resolved]

NARRATIVE: CASE EVENT DATE: 20190105
